FAERS Safety Report 8030049-1 (Version None)
Quarter: 2012Q1

REPORT INFORMATION
  Report Type: 
  Country: None (occurrence: None)
  Receive Date: 20120105
  Receipt Date: 20111222
  Transmission Date: 20120608
  Serious: Yes (Hospitalization)
  Sender: FDA-Public Use
  Company Number: 2011-000117

PATIENT
  Age: 52 Year
  Sex: Male

DRUGS (1)
  1. ASACOL HD [Suspect]
     Indication: COLITIS ULCERATIVE
     Dosage: 800 MG THREE TIMES A DAY
     Dates: start: 20040101, end: 20111101

REACTIONS (3)
  - DIZZINESS [None]
  - HYPERCHOLESTEROLAEMIA [None]
  - RECTAL HAEMORRHAGE [None]
